FAERS Safety Report 14584718 (Version 1)
Quarter: 2018Q1

REPORT INFORMATION
  Report Type: Not Available
  Country: US (occurrence: US)
  Receive Date: 20180301
  Receipt Date: 20180301
  Transmission Date: 20180509
  Serious: No
  Sender: FDA-Public Use
  Company Number: US-SHIRE-US201808006

PATIENT

DRUGS (1)
  1. CINRYZE [Suspect]
     Active Substance: HUMAN C1-ESTERASE INHIBITOR
     Indication: HEREDITARY ANGIOEDEMA
     Dosage: 100 IU, 2X A WEEK
     Route: 042

REACTIONS (2)
  - Inappropriate schedule of drug administration [Unknown]
  - No adverse event [Unknown]
